FAERS Safety Report 8492876-6 (Version None)
Quarter: 2012Q3

REPORT INFORMATION
  Report Type: 
  Country: None (occurrence: None)
  Receive Date: 20120706
  Receipt Date: 20120626
  Transmission Date: 20120928
  Serious: Yes (Other)
  Sender: FDA-Public Use
  Company Number: CA-JNJFOC-20120613339

PATIENT
  Sex: Male
  Weight: 83 kg

DRUGS (2)
  1. REMICADE [Suspect]
     Indication: CROHN'S DISEASE
     Route: 042
     Dates: start: 20110928
  2. REMICADE [Suspect]
     Indication: COLITIS
     Route: 042
     Dates: start: 20110928

REACTIONS (2)
  - VISION BLURRED [None]
  - OPTIC NERVE SHEATH HAEMORRHAGE [None]
